FAERS Safety Report 5920080-1 (Version None)
Quarter: 2008Q4

REPORT INFORMATION
  Report Type: 
  Country: None (occurrence: None)
  Receive Date: 20081014
  Receipt Date: 20081003
  Transmission Date: 20090506
  Serious: No
  Sender: FDA-Public Use
  Company Number: 001054

PATIENT
  Age: 74 Year
  Sex: Male
  Weight: 49 kg

DRUGS (6)
  1. PLETAL [Suspect]
     Indication: CEREBRAL INFARCTION
     Dosage: UNK, UNK, UNKNOWN
     Dates: start: 20050806
  2. GLUFAST (MITIGLINIDE CALCIUM HYDRATE) [Concomitant]
  3. MOHRUS TAPE (KETOPROFEN) TAPE (INCLUDING POULTICE) [Concomitant]
  4. MEVAN (PRAVASTATIN SODIUM) TABLET, 10 MG [Concomitant]
  5. AMARYL (GLIMEPIRIDE) TABLET, 1 MG [Concomitant]
  6. MAGNESIUM OXIDE (MAGNESIUM OXIDE) TABLET, 330 MG [Concomitant]

REACTIONS (2)
  - DIABETES MELLITUS INADEQUATE CONTROL [None]
  - PANCREATIC CARCINOMA [None]
